FAERS Safety Report 14716860 (Version 3)
Quarter: 2018Q3

REPORT INFORMATION
  Report Type: Spontaneous
  Country: PL (occurrence: PL)
  Receive Date: 20180404
  Receipt Date: 20180919
  Transmission Date: 20181010
  Serious: Yes (Hospitalization, Other)
  Sender: FDA-Public Use
  Company Number: PL-SHIRE-PL201812672

PATIENT

DRUGS (1)
  1. 476 (MESALAZINE/MESALAMINE) [Suspect]
     Active Substance: MESALAMINE
     Indication: CROHN^S DISEASE
     Dosage: UNK UNK, UNKNOWN FREQ.
     Route: 065

REACTIONS (14)
  - Pregnancy [Unknown]
  - Crohn^s disease [Recovering/Resolving]
  - Appendicitis [Recovered/Resolved]
  - Abdominal pain [Recovering/Resolving]
  - Oedema peripheral [Recovering/Resolving]
  - Drug ineffective [Unknown]
  - Hypokalaemia [Recovering/Resolving]
  - Premature delivery [Recovered/Resolved]
  - Hepatomegaly [Recovering/Resolving]
  - Microcytic anaemia [Recovering/Resolving]
  - Clostridium difficile infection [Recovering/Resolving]
  - Exposure during pregnancy [Unknown]
  - Ascites [Recovering/Resolving]
  - Cachexia [Recovering/Resolving]
